FAERS Safety Report 16205727 (Version 1)
Quarter: 2019Q2

REPORT INFORMATION
  Report Type: Spontaneous
  Country: DE (occurrence: DE)
  Receive Date: 20190417
  Receipt Date: 20190417
  Transmission Date: 20190711
  Serious: Yes (Hospitalization, Disabling)
  Sender: FDA-Public Use
  Company Number: DE-TEVA-2019-DE-1037718

PATIENT
  Age: 84 Year
  Sex: Female
  Weight: 70 kg

DRUGS (10)
  1. CITALOPRAM ARISTO 20 MG FILMTABLETTEN [Concomitant]
     Active Substance: CITALOPRAM HYDROBROMIDE
     Dosage: 20 MILLIGRAM DAILY;
  2. LAXOBERAL ABF?HR PERLEN [Concomitant]
  3. AMLODIPIN (BESILAT) DEXCEL 5 MG TABLETTEN [Concomitant]
     Active Substance: AMLODIPINE BESYLATE
  4. NOVAMINSULFON LICHTENSTEIN 500 MG TABLETTEN [Concomitant]
     Active Substance: METAMIZOLE SODIUM
  5. HALOPERIDOL-RATIOPHARM 2 MG/ML L?SUNG 100 ML [Suspect]
     Active Substance: HALOPERIDOL
     Indication: DEMENTIA
  6. BISOPROLOL-RATIOPHARM 5 MG [Concomitant]
     Dosage: 5 MILLIGRAM DAILY;
  7. SIMVA-ARISTO 20 MG FILMTABLETTEN [Concomitant]
     Active Substance: SIMVASTATIN
  8. L-THYROXIN JOD WINTHROP 75 ?G/150 ?G [Concomitant]
     Active Substance: LEVOTHYROXINE SODIUM
  9. HALOPERIDOL-RATIOPHARM 2 MG/ML L?SUNG 100 ML [Suspect]
     Active Substance: HALOPERIDOL
     Indication: RESTLESSNESS
     Dosage: 9 ML DAILY; DOSING SYRINGE,?2-2-5 ML INSTEAD OF 2-2-5 DROPS DOSED
     Route: 048
     Dates: start: 201812, end: 201812
  10. ASS TAD 100 MG PROTECT [Concomitant]
     Active Substance: ASPIRIN

REACTIONS (10)
  - Product substitution issue [Unknown]
  - Adverse reaction [Recovering/Resolving]
  - Confusional state [Recovering/Resolving]
  - Device use error [Unknown]
  - Incorrect dosage administered [Unknown]
  - Detoxification [Recovering/Resolving]
  - Overdose [Unknown]
  - Impaired self-care [Not Recovered/Not Resolved]
  - Product use issue [Unknown]
  - Renal disorder [Recovering/Resolving]

NARRATIVE: CASE EVENT DATE: 201812
